FAERS Safety Report 6875518-2 (Version None)
Quarter: 2010Q3

REPORT INFORMATION
  Report Type: 
  Country: None (occurrence: None)
  Receive Date: 20100727
  Receipt Date: 20100721
  Transmission Date: 20110219
  Serious: Yes (Hospitalization)
  Sender: FDA-Public Use
  Company Number: US-B.I. PHARMACEUTICALS,INC./RIDGEFIELD-2010-BP-06840BP

PATIENT
  Sex: Female

DRUGS (11)
  1. SPIRIVA [Suspect]
     Indication: CHRONIC OBSTRUCTIVE PULMONARY DISEASE
     Dosage: 18 MCG
     Route: 055
     Dates: start: 20050101
  2. SPIRIVA [Suspect]
     Indication: EMPHYSEMA
  3. SPIRIVA [Suspect]
     Indication: BRONCHITIS CHRONIC
  4. ZOCOR [Concomitant]
  5. LASIX [Concomitant]
  6. LISINOPRIL [Concomitant]
     Dosage: 10 MG
  7. FOSAMAX [Concomitant]
  8. SPIRONOLACTONE [Concomitant]
  9. METOPROLOL SUCCINATE [Concomitant]
     Dosage: 50 MG
  10. LOVAZA [Concomitant]
  11. MUCINEX [Concomitant]

REACTIONS (6)
  - FLUID RETENTION [None]
  - GALLBLADDER DISORDER [None]
  - HIP FRACTURE [None]
  - HYPERTENSION [None]
  - OSTEOPOROSIS [None]
  - WOUND INFECTION STAPHYLOCOCCAL [None]
